FAERS Safety Report 5048462-3 (Version None)
Quarter: 2006Q3

REPORT INFORMATION
  Report Type: 
  Country: None (occurrence: None)
  Receive Date: 20060705
  Receipt Date: 20060613
  Transmission Date: 20061208
  Serious: Yes (Other)
  Sender: FDA-Public Use
  Company Number: GR200603005882

PATIENT
  Age: 59 Year
  Sex: Female
  Weight: 73 kg

DRUGS (4)
  1. FORSTEO (TERIPARATIDE) PEN,DISPOSABLE [Suspect]
     Indication: OSTEOPOROSIS
     Dosage: 20 UG, DAILY (1/D), SUBCUTANEOUS
     Route: 058
     Dates: start: 20050222
  2. FORTEO PEN (FORTEO PEN) [Concomitant]
  3. SALOSPIR (ACETYLSALICYLIC ACID) [Concomitant]
  4. PACTENS (BISOPROLOL FUMARATE) [Concomitant]

REACTIONS (4)
  - INFECTION [None]
  - LYMPHOCYTE PERCENTAGE INCREASED [None]
  - NEUTROPENIA [None]
  - PLATELET COUNT DECREASED [None]
